FAERS Safety Report 12196579 (Version 2)
Quarter: 2017Q1

REPORT INFORMATION
  Report Type: Spontaneous
  Country: US (occurrence: US)
  Receive Date: 20160321
  Receipt Date: 20170316
  Transmission Date: 20170428
  Serious: No
  Sender: FDA-Public Use
  Company Number: US-ALLERGAN-1601273US

PATIENT
  Age: 64 Year
  Sex: Female

DRUGS (1)
  1. OZURDEX [Suspect]
     Active Substance: DEXAMETHASONE
     Indication: MACULAR DEGENERATION
     Dosage: 0.7 MG, SINGLE
     Route: 031
     Dates: start: 20160115, end: 20160115

REACTIONS (4)
  - Eye pain [Recovered/Resolved]
  - Needle issue [Unknown]
  - Off label use [Unknown]
  - Complication of device insertion [Unknown]

NARRATIVE: CASE EVENT DATE: 20160115
